FAERS Safety Report 19661809 (Version 2)
Quarter: 2022Q4

REPORT INFORMATION
  Report Type: Spontaneous
  Country: IT (occurrence: IT)
  Receive Date: 20210805
  Receipt Date: 20221227
  Transmission Date: 20230113
  Serious: Yes (Other)
  Sender: FDA-Public Use
  Company Number: IT-PFIZER INC-202100969651

PATIENT

DRUGS (1)
  1. PIROXICAM [Suspect]
     Active Substance: PIROXICAM
     Indication: Arthralgia
     Dosage: UNK

REACTIONS (2)
  - Urinary retention [Recovered/Resolved]
  - Periorbital oedema [Recovered/Resolved]
